FAERS Safety Report 4668600-1 (Version None)
Quarter: 2005Q2

REPORT INFORMATION
  Report Type: 
  Country: None (occurrence: None)
  Receive Date: 20050523
  Receipt Date: 20041001
  Transmission Date: 20051028
  Serious: Yes (Other)
  Sender: FDA-Public Use
  Company Number: PHNU2004DE03446

PATIENT
  Age: 60 Year
  Sex: Male
  Weight: 78 kg

DRUGS (2)
  1. ZOMETA [Suspect]
     Indication: METASTASES TO BONE
     Dosage: 4 MG, QMO
     Route: 042
     Dates: start: 20040402, end: 20040903
  2. RADIATION [Concomitant]
     Indication: METASTASES TO BONE
     Route: 065
     Dates: start: 20040624, end: 20040721

REACTIONS (6)
  - BONE DISORDER [None]
  - IMPAIRED HEALING [None]
  - INFLAMMATION [None]
  - OSTEONECROSIS [None]
  - SCINTIGRAPHY [None]
  - TOOTH EXTRACTION [None]
